FAERS Safety Report 8391482-1 (Version None)
Quarter: 2012Q2

REPORT INFORMATION
  Report Type: 
  Country: None (occurrence: None)
  Receive Date: 20120529
  Receipt Date: 20120521
  Transmission Date: 20120825
  Serious: Yes (Hospitalization)
  Sender: FDA-Public Use
  Company Number: US-BAYER-2012-051865

PATIENT
  Age: 39 Year
  Sex: Female

DRUGS (9)
  1. YAZ [Suspect]
     Indication: CONTRACEPTION
  2. YASMIN [Suspect]
  3. SINGULAIR [Concomitant]
     Dosage: 10 MG/QHS, EVERY BEDTIME
  4. HYDROCODONE-CHLORPHENIRAM [Concomitant]
     Dosage: UNK
     Dates: start: 20120123
  5. SYMBICORT [Concomitant]
     Dosage: 2 PUFF(S), BID
  6. MUCINEX [Concomitant]
     Dosage: 600 MG, BID
  7. PROVENTIL-HFA [Concomitant]
     Dosage: 90 MCG
     Dates: start: 20120123
  8. VALTREX [Concomitant]
     Dosage: 500 MG, BID PRN AS NEEDED
  9. MIRALAX [Concomitant]
     Dosage: 17 G, UNK
     Route: 048

REACTIONS (3)
  - PULMONARY EMBOLISM [None]
  - VENA CAVA THROMBOSIS [None]
  - DEEP VEIN THROMBOSIS [None]
